FAERS Safety Report 4696974-4 (Version None)
Quarter: 2005Q2

REPORT INFORMATION
  Report Type: 
  Country: None (occurrence: None)
  Receive Date: 20050622
  Receipt Date: 20050608
  Transmission Date: 20051028
  Serious: Yes (Other)
  Sender: FDA-Public Use
  Company Number: US-AMGEN-US138901

PATIENT
  Sex: Female
  Weight: 18.5 kg

DRUGS (4)
  1. ENBREL [Suspect]
     Indication: JUVENILE ARTHRITIS
     Route: 058
     Dates: start: 20050401
  2. METHOTREXATE [Concomitant]
     Route: 058
     Dates: start: 20040401
  3. PREDNISONE TAB [Concomitant]
     Dates: start: 20040401
  4. NAPROXEN [Concomitant]
     Dates: start: 20040401

REACTIONS (1)
  - OVERDOSE [None]
